FAERS Safety Report 10062982 (Version 1)
Quarter: 2014Q2

REPORT INFORMATION
  Report Type: Report from Study
  Country: US (occurrence: US)
  Receive Date: 20140407
  Receipt Date: 20140407
  Transmission Date: 20141212
  Serious: Yes (Death, Hospitalization)
  Sender: FDA-Public Use
  Company Number: US-BRISTOL-MYERS SQUIBB COMPANY-20606075

PATIENT
  Age: 68 Year
  Sex: Male
  Weight: 87 kg

DRUGS (16)
  1. NIVOLUMAB [Suspect]
     Indication: METASTATIC MALIGNANT MELANOMA
     Route: 042
     Dates: start: 20131127, end: 20140129
  2. IPILIMUMAB [Suspect]
     Indication: METASTATIC MALIGNANT MELANOMA
     Route: 042
     Dates: start: 20131127, end: 20140129
  3. BLINDED: PLACEBO [Suspect]
     Indication: METASTATIC MALIGNANT MELANOMA
     Route: 042
     Dates: start: 20131127, end: 20140129
  4. ASPIRIN [Concomitant]
  5. AZOPT [Concomitant]
  6. CRESTOR [Concomitant]
  7. COMBIGAN [Concomitant]
  8. GLIMEPIRIDE [Concomitant]
  9. COUMADINE [Concomitant]
  10. IRON [Concomitant]
  11. LUMIGAN [Concomitant]
  12. METOPROLOL [Concomitant]
  13. FENOFIBRATE [Concomitant]
  14. TRADJENTA [Concomitant]
  15. MIRALAX [Concomitant]
     Dates: start: 20131220
  16. OXYCODONE [Concomitant]
     Dates: start: 20140107

REACTIONS (1)
  - Myocardial infarction [Fatal]
